FAERS Safety Report 17323248 (Version 1)
Quarter: 2020Q1

REPORT INFORMATION
  Report Type: Spontaneous
  Country: US (occurrence: US)
  Receive Date: 20200121
  Receipt Date: 20200121
  Transmission Date: 20200409
  Serious: No
  Sender: FDA-Public Use
  Company Number: None

PATIENT
  Age: 74 Year
  Sex: Male

DRUGS (1)
  1. HEPARIN (HEPARIN NA 5000UNT/ML INJ) [Suspect]
     Active Substance: HEPARIN SODIUM
     Dates: end: 20191123

REACTIONS (3)
  - Antibody test positive [None]
  - Thrombocytopenia [None]
  - Heparin-induced thrombocytopenia [None]

NARRATIVE: CASE EVENT DATE: 20191121
